FAERS Safety Report 10434529 (Version 2)
Quarter: 2015Q2

REPORT INFORMATION
  Report Type: Report from Study
  Country: US (occurrence: US)
  Receive Date: 20140905
  Receipt Date: 20150407
  Transmission Date: 20150821
  Serious: Yes (Hospitalization)
  Sender: FDA-Public Use
  Company Number: US-GILEAD-2014-0114359

PATIENT
  Age: 85 Year
  Sex: Female

DRUGS (3)
  1. AMBRISENTAN [Suspect]
     Active Substance: AMBRISENTAN
     Indication: PULMONARY FIBROSIS
  2. AMBRISENTAN [Suspect]
     Active Substance: AMBRISENTAN
     Indication: HYPOXIA
     Dosage: 10 MG, QD
     Route: 065
     Dates: start: 20140513
  3. AMBRISENTAN [Suspect]
     Active Substance: AMBRISENTAN
     Indication: PULMONARY HYPERTENSION

REACTIONS (1)
  - Cardiac disorder [Unknown]
